FAERS Safety Report 8209048-2 (Version None)
Quarter: 2012Q1

REPORT INFORMATION
  Report Type: 
  Country: None (occurrence: None)
  Receive Date: 20120314
  Receipt Date: 20120228
  Transmission Date: 20120608
  Serious: Yes (Hospitalization, Disabling, Other)
  Sender: FDA-Public Use
  Company Number: BE-WATSON-2012-03856

PATIENT
  Age: 30 Year
  Sex: Male

DRUGS (1)
  1. SULFASALAZINE [Suspect]
     Indication: CROHN'S DISEASE
     Dosage: 3 G, DAILY
     Route: 065

REACTIONS (19)
  - LOSS OF CONSCIOUSNESS [None]
  - MONOPARESIS [None]
  - NUCLEAR MAGNETIC RESONANCE IMAGING BRAIN ABNORMAL [None]
  - MALAISE [None]
  - EXTENSOR PLANTAR RESPONSE [None]
  - NAUSEA [None]
  - HYPERBILIRUBINAEMIA [None]
  - HEPATIC ENZYME INCREASED [None]
  - RASH MORBILLIFORM [None]
  - LEUKOCYTOSIS [None]
  - EOSINOPHILIA [None]
  - TOXIC ENCEPHALOPATHY [None]
  - COMA [None]
  - PYREXIA [None]
  - HYPOTONIA [None]
  - HEPATITIS [None]
  - ELECTROENCEPHALOGRAM ABNORMAL [None]
  - HYPERSENSITIVITY [None]
  - JAUNDICE [None]
